FAERS Safety Report 25413874 (Version 1)
Quarter: 2025Q2

REPORT INFORMATION
  Report Type: Spontaneous
  Country: GB (occurrence: GB)
  Receive Date: 20250609
  Receipt Date: 20250609
  Transmission Date: 20250716
  Serious: Yes (Other)
  Sender: NOVA LABORATORIES LIMITED
  Company Number: GB-Nova Laboratories Limited-2178355

PATIENT
  Sex: Male

DRUGS (59)
  1. XROMI [Suspect]
     Active Substance: HYDROXYUREA
     Indication: Psoriasis
  2. ACITRETIN [Suspect]
     Active Substance: ACITRETIN
  3. DAIVOBET [Suspect]
     Active Substance: BETAMETHASONE DIPROPIONATE\CALCIPOTRIENE
  4. DAIVOBET [Suspect]
     Active Substance: BETAMETHASONE DIPROPIONATE\CALCIPOTRIENE
  5. DAIVOBET [Suspect]
     Active Substance: BETAMETHASONE DIPROPIONATE\CALCIPOTRIENE
  6. CODEINE [Suspect]
     Active Substance: CODEINE
  7. CODEINE [Suspect]
     Active Substance: CODEINE
  8. ACETAMINOPHEN\CODEINE PHOSPHATE [Suspect]
     Active Substance: ACETAMINOPHEN\CODEINE PHOSPHATE
  9. BETAMETHASONE DIPROPIONATE\CALCIPOTRIENE MONOHYDRATE [Suspect]
     Active Substance: BETAMETHASONE DIPROPIONATE\CALCIPOTRIENE MONOHYDRATE
  10. BETAMETHASONE DIPROPIONATE\CALCIPOTRIENE MONOHYDRATE [Suspect]
     Active Substance: BETAMETHASONE DIPROPIONATE\CALCIPOTRIENE MONOHYDRATE
  11. BETAMETHASONE DIPROPIONATE\CALCIPOTRIENE MONOHYDRATE [Suspect]
     Active Substance: BETAMETHASONE DIPROPIONATE\CALCIPOTRIENE MONOHYDRATE
  12. BETAMETHASONE DIPROPIONATE\CALCIPOTRIENE MONOHYDRATE [Suspect]
     Active Substance: BETAMETHASONE DIPROPIONATE\CALCIPOTRIENE MONOHYDRATE
  13. BETAMETHASONE DIPROPIONATE\CALCIPOTRIENE MONOHYDRATE [Suspect]
     Active Substance: BETAMETHASONE DIPROPIONATE\CALCIPOTRIENE MONOHYDRATE
  14. BETAMETHASONE DIPROPIONATE [Suspect]
     Active Substance: BETAMETHASONE DIPROPIONATE
  15. SECUKINUMAB [Suspect]
     Active Substance: SECUKINUMAB
  16. METHOTREXATE [Suspect]
     Active Substance: METHOTREXATE
  17. METHOTREXATE [Suspect]
     Active Substance: METHOTREXATE
  18. METHOTREXATE [Suspect]
     Active Substance: METHOTREXATE
  19. COCODAMOL [Suspect]
     Active Substance: ACETAMINOPHEN\CODEINE PHOSPHATE
  20. COCODAMOL [Suspect]
     Active Substance: ACETAMINOPHEN\CODEINE PHOSPHATE
  21. COCODAMOL [Suspect]
     Active Substance: ACETAMINOPHEN\CODEINE PHOSPHATE
  22. COCODAMOL [Suspect]
     Active Substance: ACETAMINOPHEN\CODEINE PHOSPHATE
  23. COCODAMOL [Suspect]
     Active Substance: ACETAMINOPHEN\CODEINE PHOSPHATE
  24. COCODAMOL [Suspect]
     Active Substance: ACETAMINOPHEN\CODEINE PHOSPHATE
  25. COCODAMOL [Suspect]
     Active Substance: ACETAMINOPHEN\CODEINE PHOSPHATE
  26. HUMIRA [Suspect]
     Active Substance: ADALIMUMAB
  27. HUMIRA [Suspect]
     Active Substance: ADALIMUMAB
  28. HUMIRA [Suspect]
     Active Substance: ADALIMUMAB
  29. HUMIRA [Suspect]
     Active Substance: ADALIMUMAB
  30. HUMIRA [Suspect]
     Active Substance: ADALIMUMAB
  31. STELARA [Suspect]
     Active Substance: USTEKINUMAB
  32. STELARA [Suspect]
     Active Substance: USTEKINUMAB
  33. STELARA [Suspect]
     Active Substance: USTEKINUMAB
  34. STELARA [Suspect]
     Active Substance: USTEKINUMAB
  35. STELARA [Suspect]
     Active Substance: USTEKINUMAB
  36. STELARA [Suspect]
     Active Substance: USTEKINUMAB
  37. STELARA [Suspect]
     Active Substance: USTEKINUMAB
  38. STELARA [Suspect]
     Active Substance: USTEKINUMAB
  39. STELARA [Suspect]
     Active Substance: USTEKINUMAB
  40. STELARA [Suspect]
     Active Substance: USTEKINUMAB
  41. STELARA [Suspect]
     Active Substance: USTEKINUMAB
  42. CYCLOSPORINE [Suspect]
     Active Substance: CYCLOSPORINE
  43. CYCLOSPORINE [Suspect]
     Active Substance: CYCLOSPORINE
  44. CYCLOSPORINE [Suspect]
     Active Substance: CYCLOSPORINE
  45. CYCLOSPORINE [Suspect]
     Active Substance: CYCLOSPORINE
  46. CYCLOSPORINE [Suspect]
     Active Substance: CYCLOSPORINE
  47. CYCLOSPORINE [Suspect]
     Active Substance: CYCLOSPORINE
  48. CYCLOSPORINE [Suspect]
     Active Substance: CYCLOSPORINE
  49. CYCLOSPORINE [Suspect]
     Active Substance: CYCLOSPORINE
  50. CYCLOSPORINE [Suspect]
     Active Substance: CYCLOSPORINE
  51. COSENTYX [Suspect]
     Active Substance: SECUKINUMAB
  52. COSENTYX [Suspect]
     Active Substance: SECUKINUMAB
  53. COSENTYX [Suspect]
     Active Substance: SECUKINUMAB
  54. ACITRETIN [Suspect]
     Active Substance: ACITRETIN
  55. ACITRETIN [Suspect]
     Active Substance: ACITRETIN
  56. ACITRETIN [Suspect]
     Active Substance: ACITRETIN
  57. HYDROXYUREA [Suspect]
     Active Substance: HYDROXYUREA
  58. HYDROXYUREA [Suspect]
     Active Substance: HYDROXYUREA
  59. HYDROXYUREA [Suspect]
     Active Substance: HYDROXYUREA

REACTIONS (10)
  - Burning sensation [Unknown]
  - Off label use [Unknown]
  - Drug ineffective [Unknown]
  - Rash [Unknown]
  - Therapeutic product effect incomplete [Unknown]
  - Skin hyperpigmentation [Unknown]
  - Pruritus [Unknown]
  - Wheezing [Unknown]
  - Hypertension [Unknown]
  - Chest pain [Unknown]
